FAERS Safety Report 5075067-0 (Version None)
Quarter: 2006Q3

REPORT INFORMATION
  Report Type: 
  Country: None (occurrence: None)
  Receive Date: 20060809
  Receipt Date: 20060726
  Transmission Date: 20061208
  Serious: Yes (Hospitalization)
  Sender: FDA-Public Use
  Company Number: US-AMGEN-US187994

PATIENT
  Sex: Male

DRUGS (2)
  1. ENBREL [Suspect]
     Indication: ANKYLOSING SPONDYLITIS
     Route: 058
     Dates: start: 20021001, end: 20060101
  2. HUMIRA [Concomitant]
     Dates: start: 20060301

REACTIONS (2)
  - EMOTIONAL DISORDER [None]
  - HIP ARTHROPLASTY [None]
